FAERS Safety Report 23356792 (Version 1)
Quarter: 2024Q1

REPORT INFORMATION
  Report Type: Spontaneous
  Country: FR (occurrence: FR)
  Receive Date: 20240102
  Receipt Date: 20240102
  Transmission Date: 20240409
  Serious: Yes (Other)
  Sender: FDA-Public Use
  Company Number: FR-JNJFOC-20231273702

PATIENT
  Sex: Male

DRUGS (2)
  1. HALOPERIDOL [Suspect]
     Active Substance: HALOPERIDOL
     Indication: Sleep disorder
     Route: 048
     Dates: start: 20231130
  2. CANNABIS SATIVA SUBSP. INDICA TOP [Concomitant]
     Active Substance: CANNABIS SATIVA SUBSP. INDICA TOP

REACTIONS (6)
  - Gaze palsy [Unknown]
  - Protrusion tongue [Unknown]
  - Dyskinesia [Unknown]
  - Tremor [Unknown]
  - Hypertonia [Unknown]
  - Speech disorder [Unknown]

NARRATIVE: CASE EVENT DATE: 20231130
